FAERS Safety Report 10272920 (Version 4)
Quarter: 2014Q3

REPORT INFORMATION
  Report Type: Report from Study
  Country: NZ (occurrence: NZ)
  Receive Date: 20140702
  Receipt Date: 20140915
  Transmission Date: 20150326
  Serious: Yes (Death, Disabling, Other)
  Sender: FDA-Public Use
  Company Number: PHHY2014NZ080770

PATIENT
  Age: 50 Year
  Sex: Female
  Weight: 65 kg

DRUGS (29)
  1. GABAPENTIN. [Concomitant]
     Active Substance: GABAPENTIN
     Indication: ANALGESIC THERAPY
     Dosage: 300 MG CAP (BOTTLE) [100]
     Route: 048
     Dates: start: 20140522
  2. METFORMIN HYDROCHLORIDE. [Concomitant]
     Active Substance: METFORMIN HYDROCHLORIDE
     Indication: DIABETES MELLITUS
     Dosage: 500 MG (2 WAKE AND 2 NIGHT)
     Dates: start: 20140522
  3. PARACETAMOL [Concomitant]
     Active Substance: ACETAMINOPHEN
     Indication: PAIN
     Dosage: 500 MG
     Dates: start: 20140522
  4. METFORMIN [Concomitant]
     Active Substance: METFORMIN HYDROCHLORIDE
  5. ZOPICLONE [Concomitant]
     Active Substance: ZOPICLONE
     Dosage: 7.5 MG TAB
     Route: 048
     Dates: start: 20140522
  6. CARDIZEM CD [Concomitant]
     Active Substance: DILTIAZEM HYDROCHLORIDE
     Indication: MYOCARDIAL ISCHAEMIA
     Dosage: 240 MG, QD, ONCE DAILY (CONTROLLED DELIVERY CAP)
     Route: 048
     Dates: start: 20140522
  7. IPRATROPIUM BROMIDE. [Concomitant]
     Active Substance: IPRATROPIUM BROMIDE
     Indication: CHRONIC OBSTRUCTIVE PULMONARY DISEASE
  8. OXYCODONE (BNM) [Concomitant]
     Indication: ANALGESIC THERAPY
     Dosage: 20 MG, (CONTROLLED R RELEASE TAB)
     Route: 048
     Dates: start: 20140611
  9. IPRATROPIUM BROMIDE. [Concomitant]
     Active Substance: IPRATROPIUM BROMIDE
     Indication: ASTHMA
     Dosage: 20 UG/ 1DOSE INHALER (200 DOSES) 4X DAILY
     Route: 055
     Dates: start: 20140522
  10. NUTRAPLUS [Concomitant]
     Indication: DRY SKIN
     Dosage: 100 G, APPLY 2-3 TIMES PER DAY (REQUIRED)
     Route: 061
     Dates: start: 20140522
  11. SERETIDE [Concomitant]
     Active Substance: FLUTICASONE FUROATE\SALMETEROL XINAFOATE
     Indication: CHRONIC OBSTRUCTIVE PULMONARY DISEASE
  12. SALBUTAMOL [Concomitant]
     Active Substance: ALBUTEROL
     Indication: ASTHMA
     Dosage: 100 UG, 1 DOSE AEROSOL (2 X 200 DOSES)
     Route: 055
     Dates: start: 20140522
  13. ASPIRIN. [Concomitant]
     Active Substance: ASPIRIN
     Indication: THROMBOSIS
     Dosage: 100 MG (1 AT BREAKFAST)
     Dates: start: 20140522
  14. FATTY HEALTHE [Concomitant]
     Dosage: UNK
     Dates: start: 20110711
  15. SERETIDE [Concomitant]
     Active Substance: FLUTICASONE FUROATE\SALMETEROL XINAFOATE
     Indication: ASTHMA
     Dosage: 125 UG/ 25 UG, 120 DOSES
     Route: 055
     Dates: start: 20140522
  16. SALBUTAMOL [Concomitant]
     Active Substance: ALBUTEROL
     Indication: CHRONIC OBSTRUCTIVE PULMONARY DISEASE
  17. DIHYDROCODEINE TARTRATE [Concomitant]
     Indication: ANALGESIC THERAPY
     Dosage: 60 MG
     Dates: start: 20140522
  18. NOVO FINE [Concomitant]
     Dosage: 31 G, 6 MM
     Dates: start: 20131031
  19. SIMVASTATIN. [Concomitant]
     Active Substance: SIMVASTATIN
     Indication: BLOOD CHOLESTEROL DECREASED
     Dosage: 40 MG TAB, 1 NIGHT
     Dates: start: 20140522
  20. MULTIVIT [Concomitant]
     Active Substance: VITAMINS
     Dosage: 6 DF (6 TABLETS, 1AT NIGHT), MULTIVITAMIN
     Dates: start: 20140522
  21. ISOSORBIDE MONONITRATE. [Concomitant]
     Active Substance: ISOSORBIDE MONONITRATE
     Indication: MYOCARDIAL ISCHAEMIA
  22. PAROXETINE [Concomitant]
     Active Substance: PAROXETINE\PAROXETINE HYDROCHLORIDE
     Indication: MENTAL DISORDER
     Dosage: 20 MG (3 AT WAKE UP TIME)
  23. OMEPRAZOLE. [Concomitant]
     Active Substance: OMEPRAZOLE
     Indication: PROPHYLAXIS
     Dosage: 40 MG QD
     Dates: start: 20140522
  24. PENMIX [Concomitant]
     Indication: DIABETES MELLITUS
     Dosage: 30 DF (30 PENFIL 100IU/1 ML)
     Route: 065
     Dates: start: 20140522
  25. GLYCERYL TRINITRATE [Concomitant]
     Active Substance: NITROGLYCERIN
     Indication: ANGINA PECTORIS
     Dosage: 400 UG/ 1 DOSE (250 DOSES), 2 PUFF UNDER TOUNG AS REQUIRED
     Route: 060
     Dates: start: 20130526
  26. CARDIZEM [Concomitant]
     Active Substance: DILTIAZEM HYDROCHLORIDE
     Dosage: UKN
  27. CLOZARIL [Suspect]
     Active Substance: CLOZAPINE
     Indication: MENTAL DISORDER
     Dosage: 225 MG, QD, ONCE DAILY NOCTE (NIGHT)
     Route: 048
     Dates: start: 2006
  28. ZOPICLONE [Concomitant]
     Active Substance: ZOPICLONE
     Indication: INSOMNIA
     Dosage: UNK
     Route: 048
  29. ISOSORBIDE MONONITRATE. [Concomitant]
     Active Substance: ISOSORBIDE MONONITRATE
     Indication: ANGINA PECTORIS
     Dosage: 60 MG, CONTROLLED RELEASE TABLES 2 AT WAKE UP TIME
     Dates: start: 20140522

REACTIONS (9)
  - Myocardial infarction [Fatal]
  - Chronic obstructive pulmonary disease [Not Recovered/Not Resolved]
  - Pain [Not Recovered/Not Resolved]
  - Anaemia [Unknown]
  - Sleep apnoea syndrome [Not Recovered/Not Resolved]
  - Myocardial ischaemia [Fatal]
  - Menorrhagia [Unknown]
  - Type 2 diabetes mellitus [Not Recovered/Not Resolved]
  - Asthma [Unknown]

NARRATIVE: CASE EVENT DATE: 2006
